FAERS Safety Report 24570486 (Version 1)
Quarter: 2024Q4

REPORT INFORMATION
  Report Type: Report from Study
  Country: GB (occurrence: GB)
  Receive Date: 20241031
  Receipt Date: 20241031
  Transmission Date: 20250115
  Serious: Yes (Hospitalization, Other)
  Sender: ALEXION PHARMACEUTICALS
  Company Number: GB-AstraZeneca-CH-00733748A

PATIENT

DRUGS (6)
  1. ULTOMIRIS [Suspect]
     Active Substance: RAVULIZUMAB-CWVZ
     Indication: Haemolytic uraemic syndrome
     Dosage: 3000 MILLIGRAM, Q8W
  2. ULTOMIRIS [Suspect]
     Active Substance: RAVULIZUMAB-CWVZ
     Dosage: 3000 MILLIGRAM, Q8W
  3. ULTOMIRIS [Suspect]
     Active Substance: RAVULIZUMAB-CWVZ
     Dosage: 3000 MILLIGRAM, Q8W
  4. ULTOMIRIS [Suspect]
     Active Substance: RAVULIZUMAB-CWVZ
     Dosage: 3000 MILLIGRAM, Q8W
  5. HUMULIN N [Suspect]
     Active Substance: INSULIN HUMAN
     Indication: Steroid diabetes
     Dosage: 14 UNITS, QD
  6. HUMULIN N [Suspect]
     Active Substance: INSULIN HUMAN
     Dosage: 14 UNITS, QD
     Route: 065

REACTIONS (6)
  - Pseudomonas infection [Unknown]
  - Arteriovenous fistula occlusion [Unknown]
  - Atrial fibrillation [Unknown]
  - Steroid diabetes [Unknown]
  - Fatigue [Not Recovered/Not Resolved]
  - Tremor [Unknown]
